FAERS Safety Report 6203674-8 (Version None)
Quarter: 2009Q2

REPORT INFORMATION
  Report Type: 
  Country: None (occurrence: None)
  Receive Date: 20090518
  Receipt Date: 20090217
  Transmission Date: 20091009
  Serious: No
  Sender: FDA-Public Use
  Company Number: WAES 0902USA02916

PATIENT
  Age: 71 Year
  Sex: Female

DRUGS (6)
  1. JANUVIA [Suspect]
     Indication: DIABETES MELLITUS
     Dosage: 50 MG/DAILY/PO
     Route: 048
     Dates: start: 20081101
  2. ADVAIR HFA [Concomitant]
  3. EXFORGE [Concomitant]
  4. LIDODERM [Concomitant]
  5. WELLBUTRIN [Concomitant]
  6. ANALGESIC [Concomitant]

REACTIONS (3)
  - ABDOMINAL DISTENSION [None]
  - DIZZINESS [None]
  - NAUSEA [None]
